FAERS Safety Report 7430969-2 (Version None)
Quarter: 2011Q2

REPORT INFORMATION
  Report Type: 
  Country: None (occurrence: None)
  Receive Date: 20110421
  Receipt Date: 20110307
  Transmission Date: 20111010
  Serious: Yes (Hospitalization, Other)
  Sender: FDA-Public Use
  Company Number: US-GENENTECH-315064

PATIENT
  Age: 28 Year
  Sex: Female

DRUGS (13)
  1. DOXORUBICIN [Suspect]
     Indication: BURKITT'S LYMPHOMA
     Dosage: 40 MG/M2, UNK
     Route: 065
  2. PREDNISONE [Suspect]
     Indication: BURKITT'S LYMPHOMA
     Dosage: 100 MG, UNK
     Route: 048
  3. OXYTOCIN [Concomitant]
     Indication: PRODUCT USED FOR UNKNOWN INDICATION
  4. CYCLOPHOSPHAMIDE [Suspect]
     Indication: BURKITT'S LYMPHOMA
     Dosage: 800 MG/M2, UNK
     Route: 042
  5. MESNA [Suspect]
     Indication: BURKITT'S LYMPHOMA
     Dosage: UNK
     Route: 042
  6. ALLOPURINOL [Concomitant]
     Indication: PRODUCT USED FOR UNKNOWN INDICATION
  7. RITUXIMAB [Suspect]
     Indication: BURKITT'S LYMPHOMA
     Dosage: 375 MG/M2, UNK
     Route: 065
  8. IFOSFAMIDE [Suspect]
     Indication: BURKITT'S LYMPHOMA
     Dosage: UNK
     Route: 065
  9. CYTARABINE [Suspect]
     Dosage: UNK
     Route: 042
  10. CYTARABINE [Suspect]
     Indication: BURKITT'S LYMPHOMA
     Dosage: 70 MG, UNK
     Route: 039
  11. ETOPOSIDE [Suspect]
     Indication: BURKITT'S LYMPHOMA
     Dosage: UNK
     Route: 065
  12. VINCRISTINE [Suspect]
     Indication: BURKITT'S LYMPHOMA
     Dosage: 2 MG, UNK
     Route: 065
  13. NEUPOGEN [Suspect]
     Indication: FEBRILE NEUTROPENIA
     Route: 065

REACTIONS (9)
  - FEBRILE NEUTROPENIA [None]
  - VAGINAL HAEMORRHAGE [None]
  - VOMITING [None]
  - PREMATURE LABOUR [None]
  - AMNIOTIC FLUID VOLUME DECREASED [None]
  - EROSIVE OESOPHAGITIS [None]
  - POSTPARTUM HAEMORRHAGE [None]
  - FOETAL GROWTH RESTRICTION [None]
  - NAUSEA [None]
